FAERS Safety Report 23310889 (Version 1)
Quarter: 2023Q4

REPORT INFORMATION
  Report Type: Spontaneous
  Country: CA (occurrence: CA)
  Receive Date: 20231218
  Receipt Date: 20231218
  Transmission Date: 20240109
  Serious: No
  Sender: FDA-Public Use
  Company Number: CA-ALKEM LABORATORIES LIMITED-CA-ALKEM-2023-12486

PATIENT
  Age: 6 Year
  Sex: Male

DRUGS (9)
  1. MYCOPHENOLATE MOFETIL [Suspect]
     Active Substance: MYCOPHENOLATE MOFETIL
     Indication: C3 glomerulopathy
     Dosage: 700 MILLIGRAM/SQ. METER, QD (PER DAY) (MYFORTIC TM) (MMF EQUIVALENT)
     Route: 065
  2. MYCOPHENOLATE MOFETIL [Suspect]
     Active Substance: MYCOPHENOLATE MOFETIL
     Dosage: 1040 MILLIGRAM/SQ. METER, QD (PER DAY) (INCREASED) (MYCOPHENOLATE MOFETIL (CELLCEPT TM)
     Route: 065
  3. PREDNISONE [Suspect]
     Active Substance: PREDNISONE
     Indication: C3 glomerulopathy
     Dosage: 45 MILLIGRAM, QD (DAILY) (60 MG/M2)
     Route: 065
  4. PREDNISONE [Suspect]
     Active Substance: PREDNISONE
     Dosage: 5 MILLIGRAM, QD (ALTERNATE DAILY) (PER OVER 3 MONTHS TO LOW-DOSE MAINTENANCE)
     Route: 065
  5. CARBAMAZEPINE [Concomitant]
     Active Substance: CARBAMAZEPINE
     Indication: Epilepsy
     Dosage: UNK
     Route: 065
  6. CARBAMAZEPINE [Concomitant]
     Active Substance: CARBAMAZEPINE
     Indication: Speech disorder developmental
  7. ENALAPRIL [Concomitant]
     Active Substance: ENALAPRIL
     Indication: Hypertension
     Dosage: UNK
     Route: 065
  8. METOPROLOL [Concomitant]
     Active Substance: METOPROLOL
     Indication: Hypertension
     Dosage: UNK
     Route: 065
  9. PRAZOSIN [Concomitant]
     Active Substance: PRAZOSIN
     Indication: Hypertension
     Dosage: UNK
     Route: 065

REACTIONS (2)
  - Drug level decreased [Unknown]
  - Therapy non-responder [Unknown]
